FAERS Safety Report 9723774 (Version 2)
Quarter: 2013Q4

REPORT INFORMATION
  Report Type: Report from Study
  Country: CA (occurrence: CA)
  Receive Date: 20131202
  Receipt Date: 20131202
  Transmission Date: 20140711
  Serious: Yes (Other)
  Sender: FDA-Public Use
  Company Number: CA-ABBVIE-13P-028-1169116-00

PATIENT
  Age: 49 Year
  Sex: Male
  Weight: 115.77 kg

DRUGS (7)
  1. HUMIRA [Suspect]
     Indication: PSORIASIS
     Route: 058
     Dates: start: 20110428
  2. CELEBREX [Concomitant]
     Indication: ARTHRITIS
     Route: 048
  3. METHOTREXATE [Concomitant]
     Indication: ARTHRITIS
     Dosage: 10 PILLS OF 2.5MG WEEKLY (UNCLEAR OF ALL TAKEN TOGETHER OR AT DIFFERENT TIMES)
     Route: 048
  4. METHOTREXATE [Concomitant]
     Indication: PSORIASIS
  5. BETADERM 0.05 % WITH LIQUOIR CARBONIS DETERGENS 10 % ADDED [Concomitant]
     Indication: PSORIASIS
     Route: 061
  6. BETADERM 0.05 % WITH LIQUOIR CARBONIS DETERGENS 10 % ADDED [Concomitant]
     Route: 061
  7. DOVOBET [Concomitant]
     Indication: PRODUCT USED FOR UNKNOWN INDICATION
     Route: 061

REACTIONS (4)
  - Abdominal mass [Unknown]
  - Diverticulitis [Recovering/Resolving]
  - Psoriasis [Not Recovered/Not Resolved]
  - Pyrexia [Unknown]
